FAERS Safety Report 5398327-2 (Version None)
Quarter: 2007Q3

REPORT INFORMATION
  Report Type: 
  Country: None (occurrence: None)
  Receive Date: 20070724
  Receipt Date: 20070712
  Transmission Date: 20080115
  Serious: Yes (Other)
  Sender: FDA-Public Use
  Company Number: 430001N07USA

PATIENT
  Age: 43 Year
  Sex: Male
  Weight: 116 kg

DRUGS (20)
  1. NOVANTRONE [Suspect]
     Dosage: 25 MG, ONCE, INTRAVENOUS (NOT OTHERWISE SPECIFIED) 28 MG, ONCE INTRAVENOUS (NOT OTHERWISE SPECIFIED)
     Route: 042
     Dates: start: 20020514, end: 20020514
  2. NOVANTRONE [Suspect]
     Dosage: 25 MG, ONCE, INTRAVENOUS (NOT OTHERWISE SPECIFIED) 28 MG, ONCE INTRAVENOUS (NOT OTHERWISE SPECIFIED)
     Route: 042
     Dates: start: 20020813, end: 20020813
  3. NOVANTRONE [Suspect]
     Dosage: 25 MG, ONCE, INTRAVENOUS (NOT OTHERWISE SPECIFIED) 28 MG, ONCE INTRAVENOUS (NOT OTHERWISE SPECIFIED)
     Route: 042
     Dates: start: 20030305, end: 20030305
  4. VENLAFAXINE HCL [Concomitant]
  5. SUMATRIPTAN SUCCINATE [Concomitant]
  6. LITHIUM CARBONATE [Concomitant]
  7. GABAPENTIN [Concomitant]
  8. CYCLOBENZAPRINE HCL [Concomitant]
  9. AMANTADINE HCL [Concomitant]
  10. TOLTERODINE TARTRATE [Concomitant]
  11. TESTOSTERONE [Concomitant]
  12. BACLOFEN [Concomitant]
  13. RISPERIDONE [Concomitant]
  14. LOVASTATIN [Concomitant]
  15. GLATIRAMER ACETATE [Concomitant]
  16. METHYLPHENIDATE HCL [Concomitant]
  17. COTYLENOL [Concomitant]
  18. HYDROMORPHONE HCL [Concomitant]
  19. CEPHALEXIN [Concomitant]
  20. OXYCODONE HCL [Concomitant]

REACTIONS (1)
  - EJECTION FRACTION DECREASED [None]
